FAERS Safety Report 13970659 (Version 2)
Quarter: 2018Q1

REPORT INFORMATION
  Report Type: Spontaneous
  Country: US (occurrence: US)
  Receive Date: 20170914
  Receipt Date: 20180329
  Transmission Date: 20180508
  Serious: No
  Sender: FDA-Public Use
  Company Number: US-ASTRAZENECA-2017SE93336

PATIENT
  Age: 22155 Day
  Sex: Male

DRUGS (1)
  1. SYMBICORT [Suspect]
     Active Substance: BUDESONIDE\FORMOTEROL FUMARATE DIHYDRATE
     Dosage: 160/4.5 MCG, 2 INHALATIONS TWICE DAILY
     Route: 055

REACTIONS (2)
  - Drug dispensing error [Unknown]
  - Emphysema [Unknown]

NARRATIVE: CASE EVENT DATE: 20170804
